FAERS Safety Report 8975654 (Version 1)
Quarter: 2012Q4

REPORT INFORMATION
  Report Type: Report from Study
  Country: DE (occurrence: DE)
  Receive Date: 20121219
  Receipt Date: 20121219
  Transmission Date: 20130627
  Serious: Yes (Life-Threatening, Hospitalization)
  Sender: FDA-Public Use
  Company Number: DE-ROCHE-719870

PATIENT
  Age: 68 Year
  Sex: Male
  Weight: 70 kg

DRUGS (2)
  1. CAPECITABINE [Suspect]
     Indication: RECTAL CANCER
     Dosage: DATE OF MOST RECENT DOSE BEFORE SAE: 14 JULY 2010, SCHEDULE: 1000MG/ME3,BID,D1-D15 OF 3 WEEK CYCLE
     Route: 048
     Dates: start: 20100215
  2. NOVALGIN [Concomitant]
     Indication: PROCTALGIA
     Route: 048
     Dates: start: 20100714, end: 20100726

REACTIONS (4)
  - Deep vein thrombosis [Recovered/Resolved]
  - Pulmonary embolism [Recovered/Resolved]
  - Anastomotic leak [Recovered/Resolved]
  - Postoperative abscess [Recovered/Resolved]
